FAERS Safety Report 22527730 (Version 4)
Quarter: 2023Q2

REPORT INFORMATION
  Report Type: Report from Study
  Country: US (occurrence: US)
  Receive Date: 20230606
  Receipt Date: 20230626
  Transmission Date: 20230722
  Serious: No
  Sender: FDA-Public Use
  Company Number: US-002147023-NVSC2023US127580

PATIENT
  Sex: Female

DRUGS (1)
  1. KESIMPTA [Suspect]
     Active Substance: OFATUMUMAB
     Indication: Relapsing multiple sclerosis
     Dosage: UNK
     Route: 065
     Dates: start: 20230519

REACTIONS (6)
  - Urinary tract infection [Unknown]
  - Photosensitivity reaction [Unknown]
  - Sunburn [Unknown]
  - Fatigue [Unknown]
  - Disturbance in attention [Unknown]
  - Memory impairment [Unknown]
